FAERS Safety Report 11865096 (Version 1)
Quarter: 2015Q4

REPORT INFORMATION
  Report Type: Spontaneous
  Country: US (occurrence: US)
  Receive Date: 20151223
  Receipt Date: 20151223
  Transmission Date: 20160305
  Serious: Yes (Disabling, Other)
  Sender: FDA-Public Use
  Company Number: US-BAYER-2015-493456

PATIENT
  Age: 55 Year
  Sex: Female
  Weight: 72.56 kg

DRUGS (1)
  1. COPPERTONE SPF 4 [Suspect]
     Active Substance: OCTINOXATE\OCTOCRYLENE
     Dosage: UNK, QD
     Route: 061
     Dates: start: 1960

REACTIONS (2)
  - Sunburn [None]
  - Malignant melanoma [Not Recovered/Not Resolved]

NARRATIVE: CASE EVENT DATE: 2001
